FAERS Safety Report 13561394 (Version 1)
Quarter: 2017Q2

REPORT INFORMATION
  Report Type: Other
  Country: IT (occurrence: IT)
  Receive Date: 20170518
  Receipt Date: 20170518
  Transmission Date: 20170830
  Serious: Yes (Other)
  Sender: FDA-Public Use
  Company Number: IT-GEHC-2017CSU001304

PATIENT

DRUGS (1)
  1. VISIPAQUE [Suspect]
     Active Substance: IODIXANOL
     Indication: PRODUCT USED FOR UNKNOWN INDICATION
     Dosage: UNK UNK, SINGLE
     Route: 065
     Dates: start: 20170429, end: 20170429

REACTIONS (3)
  - Skin reaction [Unknown]
  - Respiratory failure [Unknown]
  - Retching [Unknown]

NARRATIVE: CASE EVENT DATE: 20170429
